FAERS Safety Report 23329321 (Version 1)
Quarter: 2023Q4

REPORT INFORMATION
  Report Type: Spontaneous
  Country: CO (occurrence: CO)
  Receive Date: 20231222
  Receipt Date: 20231222
  Transmission Date: 20240109
  Serious: Yes (Death, Hospitalization, Other)
  Sender: FDA-Public Use
  Company Number: CO-CIPLA (EU) LIMITED-2023CO08197

PATIENT

DRUGS (2)
  1. LENALIDOMIDE [Suspect]
     Active Substance: LENALIDOMIDE
     Indication: Plasma cell myeloma
     Dosage: UNK
     Route: 065
  2. LENALIDOMIDE [Suspect]
     Active Substance: LENALIDOMIDE
     Dosage: 10 MILLIGRAM, QD (1 EVERY 24 HOURS)
     Route: 048
     Dates: start: 20231018, end: 20231020

REACTIONS (2)
  - Plasma cell myeloma [Fatal]
  - Disease progression [Unknown]

NARRATIVE: CASE EVENT DATE: 20230101
